FAERS Safety Report 6192133-7 (Version None)
Quarter: 2009Q2

REPORT INFORMATION
  Report Type: 
  Country: None (occurrence: None)
  Receive Date: 20090515
  Receipt Date: 20090504
  Transmission Date: 20091009
  Serious: Yes (Hospitalization)
  Sender: FDA-Public Use
  Company Number: GT-PFIZER INC-2009205879

PATIENT
  Age: 35 Year

DRUGS (4)
  1. GABAPENTIN [Suspect]
     Indication: PARTIAL SEIZURES
     Dosage: 1200MG PER DAY
     Route: 048
     Dates: start: 20080807, end: 20090509
  2. VALPROIC ACID [Concomitant]
     Indication: PARTIAL SEIZURES
     Dosage: UNK
     Route: 048
     Dates: start: 20050101
  3. OXCARBAZEPINE [Concomitant]
     Indication: PARTIAL SEIZURES
     Dosage: UNK
     Route: 048
     Dates: start: 20060301
  4. ESCITALOPRAM [Concomitant]
     Dosage: 10 MG, 1X/DAY
     Dates: start: 20070601

REACTIONS (1)
  - STATUS EPILEPTICUS [None]
